FAERS Safety Report 6677916-9 (Version None)
Quarter: 2010Q2

REPORT INFORMATION
  Report Type: 
  Country: None (occurrence: None)
  Receive Date: 20100412
  Receipt Date: 20100225
  Transmission Date: 20101027
  Serious: Yes (Other)
  Sender: FDA-Public Use
  Company Number: US-ELI_LILLY_AND_COMPANY-US201004002677

PATIENT
  Sex: Female

DRUGS (6)
  1. FORTEO [Suspect]
     Indication: OSTEOPOROSIS
     Dosage: 20 UG, DAILY (1/D)
     Dates: start: 20090529
  2. BENICAR [Concomitant]
     Dosage: 1/2 TABLET
  3. ASPIRIN [Concomitant]
     Dosage: UNK, DAILY (1/D)
  4. CITRICAL [Concomitant]
     Dosage: UNK, DAILY (1/D)
  5. CALCIUM [Concomitant]
  6. MULTIVITAMINS, COMBINATIONS [Concomitant]

REACTIONS (1)
  - MALIGNANT MELANOMA [None]
